FAERS Safety Report 5064745-5 (Version None)
Quarter: 2006Q3

REPORT INFORMATION
  Report Type: 
  Country: None (occurrence: None)
  Receive Date: 20060728
  Receipt Date: 20060719
  Transmission Date: 20061208
  Serious: Yes (Other)
  Sender: FDA-Public Use
  Company Number: BR-JNJFOC-20060704545

PATIENT
  Age: 57 Year
  Sex: Male
  Weight: 85 kg

DRUGS (5)
  1. TYLENOL (CAPLET) [Suspect]
     Route: 048
  2. TYLENOL (CAPLET) [Suspect]
     Indication: PAIN
     Route: 048
  3. CALTREN [Concomitant]
     Indication: HYPERTENSION
     Route: 048
  4. OLCADIL [Concomitant]
     Indication: PANIC DISORDER
     Route: 048
  5. RIVOTRIL [Concomitant]
     Indication: SEDATIVE THERAPY
     Dosage: PRN

REACTIONS (1)
  - HYPERTENSIVE CRISIS [None]
